FAERS Safety Report 7685111-X (Version None)
Quarter: 2011Q3

REPORT INFORMATION
  Report Type: 
  Country: None (occurrence: None)
  Receive Date: 20110816
  Receipt Date: 20110803
  Transmission Date: 20111222
  Serious: No
  Sender: FDA-Public Use
  Company Number: US-B.I. PHARMACEUTICALS,INC./RIDGEFIELD-2011-BP-19162BP

PATIENT
  Sex: Female

DRUGS (2)
  1. PRADAXA [Suspect]
     Route: 048
     Dates: start: 20110705
  2. ACIPHEX [Concomitant]

REACTIONS (4)
  - DYSPEPSIA [None]
  - COUGH [None]
  - DYSGEUSIA [None]
  - DECREASED APPETITE [None]
